FAERS Safety Report 4681268-3 (Version None)
Quarter: 2005Q2

REPORT INFORMATION
  Report Type: 
  Country: None (occurrence: None)
  Receive Date: 20050602
  Receipt Date: 20050602
  Transmission Date: 20051028
  Serious: Yes (Hospitalization, Disabling)
  Sender: FDA-Public Use
  Company Number: None

PATIENT
  Age: 58 Year
  Sex: Male
  Weight: 104.3273 kg

DRUGS (1)
  1. VIAGRA [Suspect]
     Indication: ERECTILE DYSFUNCTION
     Dosage: 50 MG 3 TIMES/WK ORAL
     Route: 048
     Dates: start: 19990815, end: 20000714

REACTIONS (4)
  - BLINDNESS [None]
  - DISABILITY [None]
  - OPTIC NERVE INFARCTION [None]
  - VISION BLURRED [None]
